FAERS Safety Report 5225010-6 (Version None)
Quarter: 2007Q1

REPORT INFORMATION
  Report Type: 
  Country: None (occurrence: None)
  Receive Date: 20070126
  Receipt Date: 20070115
  Transmission Date: 20070707
  Serious: Yes (Hospitalization)
  Sender: FDA-Public Use
  Company Number: 6029040

PATIENT
  Age: 94 Year
  Sex: Female

DRUGS (7)
  1. BISOPROLOL FUMARATE [Suspect]
     Indication: DRUG USE FOR UNKNOWN INDICATION
     Dosage: 5 MG (5 MG, 1 D)  ORAL
     Route: 048
  2. MIANSERINE (MIANSERIN HYDROCHLORIDE) [Suspect]
     Indication: DYSTHYMIC DISORDER
     Dosage: 60 MG (60 MG, 1 D) ORAL
     Route: 048
  3. RISPERDAL [Suspect]
     Indication: DELUSIONAL DISORDER, PERSECUTORY TYPE
     Dosage: 2 MG (2 MG, 1 D) ORAL
     Route: 048
  4. KARDEGIC (POWDER FOR ORAL SOLUTION) (ACETYLSALICYLATE LYSINE) [Suspect]
     Indication: DRUG USE FOR UNKNOWN INDICATION
     Dosage: 75 MG (75 MG, 1 D) ORAL
     Route: 048
  5. ATACAND [Suspect]
     Indication: DRUG USE FOR UNKNOWN INDICATION
     Dosage: 16 MG (16 MG, 1 D) ORAL
     Route: 048
     Dates: end: 20061204
  6. TRINIPATCH (TRANSDERMAL PATCH) (GLYCERYL TRINITRATE) [Suspect]
     Indication: DRUG USE FOR UNKNOWN INDICATION
     Dosage: 10 MG (10 MG, 1 D) TRANSDERMAL
     Route: 062
     Dates: end: 20061204
  7. XANAX [Suspect]
     Indication: DRUG USE FOR UNKNOWN INDICATION
     Dosage: 0, 25 MG (0, 25 MG, 1 D) ORAL
     Route: 048

REACTIONS (5)
  - DEHYDRATION [None]
  - FAECALOMA [None]
  - FALL [None]
  - ORTHOSTATIC HYPOTENSION [None]
  - RENAL FAILURE [None]
